FAERS Safety Report 9322412 (Version 2)
Quarter: 2013Q3

REPORT INFORMATION
  Report Type: Spontaneous
  Country: DE (occurrence: DE)
  Receive Date: 20130531
  Receipt Date: 20130724
  Transmission Date: 20140515
  Serious: Yes (Other)
  Sender: FDA-Public Use
  Company Number: DE-UCBSA-087437

PATIENT
  Sex: 0

DRUGS (1)
  1. LACOSAMIDE [Suspect]
     Indication: STATUS EPILEPTICUS
     Dosage: DOSAGE : 50-400 MG

REACTIONS (1)
  - Atrioventricular block complete [Unknown]
